FAERS Safety Report 5392636-9 (Version None)
Quarter: 2007Q3

REPORT INFORMATION
  Report Type: 
  Country: None (occurrence: None)
  Receive Date: 20070720
  Receipt Date: 20070710
  Transmission Date: 20080115
  Serious: Yes (Hospitalization)
  Sender: FDA-Public Use
  Company Number: CG-MERCK-0707USA01838

PATIENT
  Age: 37 Year
  Sex: Male
  Weight: 67 kg

DRUGS (1)
  1. STROMECTOL [Suspect]
     Route: 048
     Dates: start: 20070328, end: 20070328

REACTIONS (7)
  - AMNESIA [None]
  - ASTHENIA [None]
  - BLADDER DISTENSION [None]
  - CONJUNCTIVAL HAEMORRHAGE [None]
  - DISORIENTATION [None]
  - GAIT DISTURBANCE [None]
  - PYREXIA [None]
